FAERS Safety Report 7134013-6 (Version None)
Quarter: 2010Q4

REPORT INFORMATION
  Report Type: 
  Country: None (occurrence: None)
  Receive Date: 20101117
  Receipt Date: 20101109
  Transmission Date: 20110411
  Serious: Yes (Death, Other)
  Sender: FDA-Public Use
  Company Number: AXC-2010-000236

PATIENT
  Age: 61 Year
  Sex: Male

DRUGS (3)
  1. SUCRALFATE [Suspect]
     Indication: PRODUCT USED FOR UNKNOWN INDICATION
     Dosage: 6 G, QD
     Dates: start: 19870617, end: 19870706
  2. NUTRISON (CARBOHYDRATES NOS, LIPIDS NOS, PROTEINS NOS) UNKNOWN [Suspect]
     Indication: PRODUCT USED FOR UNKNOWN INDICATION
     Dosage: 500 ML, INTRAGASTRIC
     Dates: start: 19870623, end: 19870627
  3. PRENUTRISON (PRENUTRISON) UNKNOWN [Suspect]
     Indication: PRODUCT USED FOR UNKNOWN INDICATION
     Dosage: 500 ML, INTRAGASTRIC
     Dates: start: 19870626, end: 19870627

REACTIONS (4)
  - BEZOAR [None]
  - CARDIOPULMONARY FAILURE [None]
  - LUNG INFECTION [None]
  - RENAL FAILURE [None]
